FAERS Safety Report 22004762 (Version 1)
Quarter: 2023Q1

REPORT INFORMATION
  Report Type: Spontaneous
  Country: US (occurrence: US)
  Receive Date: 20230217
  Receipt Date: 20230217
  Transmission Date: 20230417
  Serious: No
  Sender: FDA-Public Use
  Company Number: US-BIOGEN-2023BI01188303

PATIENT
  Sex: Female

DRUGS (5)
  1. TECFIDERA [Suspect]
     Active Substance: DIMETHYL FUMARATE
     Indication: Multiple sclerosis relapse
     Route: 050
  2. CELLCEPT [Concomitant]
     Active Substance: MYCOPHENOLATE MOFETIL
     Route: 050
  3. METHOTREXATE [Concomitant]
     Active Substance: METHOTREXATE
     Route: 050
  4. TOPIRAMATE [Concomitant]
     Active Substance: TOPIRAMATE
     Route: 050
  5. LEUCOVORIN [Concomitant]
     Active Substance: LEUCOVORIN
     Route: 050

REACTIONS (1)
  - Multiple sclerosis [Unknown]
